FAERS Safety Report 7680388-9 (Version None)
Quarter: 2011Q3

REPORT INFORMATION
  Report Type: 
  Country: None (occurrence: None)
  Receive Date: 20110812
  Receipt Date: 20110809
  Transmission Date: 20111222
  Serious: Yes (Death, Other)
  Sender: FDA-Public Use
  Company Number: US-SANOFI-AVENTIS-2011SA051289

PATIENT
  Age: 66 Year
  Sex: Male

DRUGS (5)
  1. BEVACIZUMAB [Suspect]
     Route: 042
     Dates: start: 20110523, end: 20110606
  2. OXALIPLATIN [Suspect]
     Route: 065
     Dates: start: 20110523
  3. FLUOROURACIL [Suspect]
     Route: 065
     Dates: start: 20110523
  4. LEUCOVORIN CALCIUM [Suspect]
     Route: 065
     Dates: start: 20110523
  5. FLUOROURACIL [Suspect]
     Route: 065
     Dates: start: 20110523

REACTIONS (1)
  - ENTEROCOLITIS HAEMORRHAGIC [None]
